FAERS Safety Report 19443247 (Version 1)
Quarter: 2021Q2

REPORT INFORMATION
  Report Type: Report from Study
  Country: SE (occurrence: DE)
  Receive Date: 20210621
  Receipt Date: 20210621
  Transmission Date: 20210717
  Serious: Yes (Hospitalization)
  Sender: FDA-Public Use
  Company Number: DE-TAKEDA-2021TUS037323

PATIENT
  Age: 51 Year
  Weight: 79 kg

DRUGS (16)
  1. ISENTRESS [Concomitant]
     Active Substance: RALTEGRAVIR POTASSIUM
     Indication: ANTIRETROVIRAL THERAPY
     Dosage: 400 MILLIGRAM, BID
     Route: 048
     Dates: start: 20080130
  2. RANIBIZUMAB. [Concomitant]
     Active Substance: RANIBIZUMAB
     Indication: MACULAR DEGENERATION
     Dosage: ONCE FEB/2021, TREATMENT IN SOME WEEKS IS PLANNED
     Route: 050
     Dates: start: 202102
  3. COMBIVIR [Concomitant]
     Active Substance: LAMIVUDINE\ZIDOVUDINE
     Indication: ANTIRETROVIRAL THERAPY
     Dosage: UNK UNK, BID
     Route: 048
     Dates: start: 20080130
  4. PEGYLATED COAGULATION FACTOR VIII [Suspect]
     Active Substance: ANTIHEMOPHILIC FACTOR, PEGYLATED (MW 20000) HUMAN SEQUENCE RECOMBINANT
     Indication: PROPHYLAXIS
     Dosage: 4000 INTERNATIONAL UNIT, EVERY 4 DAYS
     Route: 065
     Dates: start: 20190726
  5. NORVIR [Concomitant]
     Active Substance: RITONAVIR
     Indication: ANTIRETROVIRAL THERAPY
     Dosage: 100 MILLIGRAM, BID
     Route: 048
     Dates: start: 20080130, end: 201801
  6. SOFOSBUVIR [Concomitant]
     Active Substance: SOFOSBUVIR
     Indication: HEPATITIS C
     Dosage: UNK
     Route: 048
     Dates: start: 20140828, end: 20141110
  7. SIMEPREVIR [Concomitant]
     Active Substance: SIMEPREVIR
     Indication: HEPATITIS C
     Dosage: UNK
     Route: 048
     Dates: start: 20140828, end: 20141110
  8. ESCITALOPRAM [Concomitant]
     Active Substance: ESCITALOPRAM OXALATE
     Indication: ANTIDEPRESSANT THERAPY
     Dosage: UNK UNK, QD
     Route: 048
     Dates: start: 20210609
  9. PEGYLATED COAGULATION FACTOR VIII [Suspect]
     Active Substance: ANTIHEMOPHILIC FACTOR, PEGYLATED (MW 20000) HUMAN SEQUENCE RECOMBINANT
     Indication: PROPHYLAXIS
     Dosage: 4000 INTERNATIONAL UNIT, EVERY 4 DAYS
     Route: 065
     Dates: start: 20190726
  10. NOVALGIN [Concomitant]
     Indication: ANALGESIC THERAPY
     Dosage: UNK
     Route: 048
     Dates: start: 20190521
  11. RAMIPRIL. [Concomitant]
     Active Substance: RAMIPRIL
     Indication: HYPERTENSION
     Dosage: 2.5 MILLIGRAM, 1
     Route: 048
  12. PREZISTA [Concomitant]
     Active Substance: DARUNAVIR ETHANOLATE
     Indication: ANTIRETROVIRAL THERAPY
     Dosage: 300 MILLIGRAM, 2 PER DAY
     Route: 048
     Dates: start: 20080130
  13. PEGYLATED COAGULATION FACTOR VIII [Suspect]
     Active Substance: ANTIHEMOPHILIC FACTOR, PEGYLATED (MW 20000) HUMAN SEQUENCE RECOMBINANT
     Indication: PROPHYLAXIS
     Dosage: 4000 INTERNATIONAL UNIT, EVERY 4 DAYS
     Route: 065
     Dates: start: 20190726
  14. COBICISTAT [Concomitant]
     Active Substance: COBICISTAT
     Indication: ANTIRETROVIRAL THERAPY
     Dosage: 150 MILLIGRAM, QD
     Route: 048
     Dates: start: 201801
  15. OXCARBAZEPIN [Concomitant]
     Active Substance: OXCARBAZEPINE
     Indication: VERTIGO
     Dosage: UNK
     Route: 048
     Dates: start: 20210520
  16. IBUPROFEN. [Concomitant]
     Active Substance: IBUPROFEN
     Dosage: 400 MILLIGRAM, 1?3 PER DAY
     Route: 048

REACTIONS (1)
  - Chest pain [Not Recovered/Not Resolved]

NARRATIVE: CASE EVENT DATE: 20210523
